FAERS Safety Report 21644429 (Version 2)
Quarter: 2022Q4

REPORT INFORMATION
  Report Type: Spontaneous
  Country: SE (occurrence: SE)
  Receive Date: 20221125
  Receipt Date: 20221209
  Transmission Date: 20230112
  Serious: Yes (Death)
  Sender: FDA-Public Use
  Company Number: None

PATIENT
  Age: 84 Year
  Sex: Female

DRUGS (4)
  1. TROPICAMIDE [Suspect]
     Active Substance: TROPICAMIDE
     Indication: Eye operation
     Dosage: 1 DRP  (DROP (1/12 MILLILITRE))
     Route: 047
     Dates: start: 20220908, end: 20220908
  2. MIDAZOLAM [Suspect]
     Active Substance: MIDAZOLAM
     Indication: Anxiety
     Dosage: 3 ML
     Route: 048
     Dates: start: 20220908, end: 20220908
  3. PHENYLEPHRINE HYDROCHLORIDE [Suspect]
     Active Substance: PHENYLEPHRINE HYDROCHLORIDE
     Indication: Eye operation
     Dosage: 1 DRP
     Route: 065
     Dates: start: 20220908, end: 20220908
  4. BENOXINATE [Suspect]
     Active Substance: BENOXINATE
     Indication: Anaesthesia
     Dosage: 1 DRP
     Route: 065
     Dates: start: 20220908, end: 20220908

REACTIONS (2)
  - Head injury [Fatal]
  - Fall [Fatal]

NARRATIVE: CASE EVENT DATE: 20220908
